FAERS Safety Report 12834437 (Version 2)
Quarter: 2016Q4

REPORT INFORMATION
  Report Type: Report from Study
  Country: RO (occurrence: RO)
  Receive Date: 20161010
  Receipt Date: 20161028
  Transmission Date: 20170207
  Serious: Yes (Hospitalization)
  Sender: FDA-Public Use
  Company Number: RO-B.I. PHARMACEUTICALS,INC./RIDGEFIELD-2016-BI-30564BI

PATIENT
  Age: 53 Year
  Sex: Male
  Weight: 95.4 kg

DRUGS (9)
  1. GLICLAZIDE [Concomitant]
     Active Substance: GLICLAZIDE
     Indication: DIABETES MELLITUS
     Route: 048
     Dates: start: 20120503
  2. ASPENTER [Concomitant]
     Active Substance: ASPIRIN
     Indication: PROPHYLAXIS
     Route: 048
     Dates: start: 2008
  3. PERINDOPRIL [Concomitant]
     Active Substance: PERINDOPRIL
     Indication: ANGINA PECTORIS
     Route: 048
     Dates: start: 20150511
  4. CARVEDILOL. [Concomitant]
     Active Substance: CARVEDILOL
     Indication: ANGINA PECTORIS
     Route: 048
     Dates: start: 20140521
  5. CRESTOR [Concomitant]
     Active Substance: ROSUVASTATIN CALCIUM
     Indication: HYPERLIPIDAEMIA
     Route: 048
     Dates: start: 20120404
  6. TROMBOSTOP [Concomitant]
     Indication: PROPHYLAXIS
     Route: 048
     Dates: start: 20150501
  7. PLACEBO [Suspect]
     Active Substance: UNSPECIFIED INGREDIENT
     Indication: TYPE 2 DIABETES MELLITUS
     Route: 048
     Dates: start: 20141001, end: 20160510
  8. LIPANTHYL [Concomitant]
     Active Substance: FENOFIBRATE
     Indication: HYPERLIPIDAEMIA
     Route: 048
     Dates: start: 20120404
  9. TOUJEO [Concomitant]
     Active Substance: INSULIN GLARGINE
     Indication: DIABETES MELLITUS
     Route: 058
     Dates: start: 20160224

REACTIONS (11)
  - Carcinoid tumour of the duodenum [Not Recovered/Not Resolved]
  - Pancreatic neuroendocrine tumour [Not Recovered/Not Resolved]
  - Iron deficiency [Not Recovered/Not Resolved]
  - Peritoneal adhesions [Recovered/Resolved]
  - Umbilical hernia [Recovered/Resolved]
  - Hyperuricaemia [Not Recovered/Not Resolved]
  - Reflux gastritis [Not Recovered/Not Resolved]
  - Cholecystitis chronic [Recovered/Resolved]
  - Pancreatitis acute [Not Recovered/Not Resolved]
  - Pancreatitis chronic [Recovered/Resolved]
  - Gastrooesophageal reflux disease [Recovered/Resolved]

NARRATIVE: CASE EVENT DATE: 20160422
